FAERS Safety Report 18939504 (Version 1)
Quarter: 2021Q1

REPORT INFORMATION
  Report Type: Spontaneous
  Country: US (occurrence: US)
  Receive Date: 20210224
  Receipt Date: 20210224
  Transmission Date: 20210420
  Serious: Yes (Hospitalization, Other)
  Sender: FDA-Public Use
  Company Number: None

PATIENT
  Age: 49 Year
  Sex: Female
  Weight: 63.5 kg

DRUGS (1)
  1. LILETTA [Suspect]
     Active Substance: LEVONORGESTREL
     Indication: MENORRHAGIA
     Dates: start: 20190815, end: 20200121

REACTIONS (3)
  - Haemorrhage [None]
  - Uterine leiomyoma [None]
  - Hormone receptor positive breast cancer [None]

NARRATIVE: CASE EVENT DATE: 20191124
